FAERS Safety Report 16375324 (Version 1)
Quarter: 2019Q2

REPORT INFORMATION
  Report Type: Report from Study
  Country: None (occurrence: IE)
  Receive Date: 20190531
  Receipt Date: 20190531
  Transmission Date: 20190711
  Serious: Yes (Death)
  Sender: FDA-Public Use
  Company Number: IE-ABBVIE-19K-229-2801672-00

PATIENT
  Age: 73 Year
  Sex: Female

DRUGS (1)
  1. VENETOCLAX. [Suspect]
     Active Substance: VENETOCLAX
     Indication: T-CELL PROLYMPHOCYTIC LEUKAEMIA
     Route: 048

REACTIONS (2)
  - Lymphoplasmacytoid lymphoma/immunocytoma [Fatal]
  - Product use in unapproved indication [Unknown]
